FAERS Safety Report 7207844-1 (Version None)
Quarter: 2010Q4

REPORT INFORMATION
  Report Type: 
  Country: None (occurrence: None)
  Receive Date: 20101221
  Receipt Date: 20101207
  Transmission Date: 20110411
  Serious: Yes (Hospitalization)
  Sender: FDA-Public Use
  Company Number: 2008002689

PATIENT
  Age: 57 Year
  Sex: Male

DRUGS (10)
  1. ERLOTINIB (ERLOTINIB) (TABLET) (ERLOTINIB) [Suspect]
     Indication: LUNG ADENOCARCINOMA
     Dosage: (150 MG, QD), ORAL, (100 MG, QD), ORAL, (75 MG, QD), ORAL
     Route: 048
     Dates: start: 20080623, end: 20080707
  2. ERLOTINIB (ERLOTINIB) (TABLET) (ERLOTINIB) [Suspect]
     Indication: LUNG ADENOCARCINOMA
     Dosage: (150 MG, QD), ORAL, (100 MG, QD), ORAL, (75 MG, QD), ORAL
     Route: 048
     Dates: start: 20080708, end: 20080821
  3. ERLOTINIB (ERLOTINIB) (TABLET) (ERLOTINIB) [Suspect]
     Indication: LUNG ADENOCARCINOMA
     Dosage: (150 MG, QD), ORAL, (100 MG, QD), ORAL, (75 MG, QD), ORAL
     Route: 048
     Dates: start: 20080519, end: 20090122
  4. BISOLVON (BROMHEXINE HYDROCHLORIDE) [Concomitant]
  5. MUCOSAL (ACETYLCYSTEINE) [Concomitant]
  6. MOBIC [Concomitant]
  7. GASTER (FAMOTIDINE) [Concomitant]
  8. CODEINE PHOSPHATE (CODEINE PHOSPHATE) [Concomitant]
  9. MUCOSTA (REBAMIPIDE) [Concomitant]
  10. TEGRETOL [Concomitant]

REACTIONS (5)
  - EMPHYSEMA [None]
  - MALIGNANT NEOPLASM PROGRESSION [None]
  - NON-SMALL CELL LUNG CANCER METASTATIC [None]
  - PNEUMOTHORAX [None]
  - RASH [None]
